FAERS Safety Report 5844845-X (Version None)
Quarter: 2008Q3

REPORT INFORMATION
  Report Type: 
  Country: None (occurrence: None)
  Receive Date: 20080814
  Receipt Date: 20080807
  Transmission Date: 20090109
  Serious: Yes (Hospitalization, Other)
  Sender: FDA-Public Use
  Company Number: DE-BAYER-200820271GPV

PATIENT
  Age: 19 Year
  Sex: Female
  Weight: 91 kg

DRUGS (1)
  1. DROSPIRENONE AND ETHINYL ESTRADIOL [Suspect]
     Indication: ORAL CONTRACEPTION
     Route: 048
     Dates: start: 20080301, end: 20080601

REACTIONS (4)
  - ABDOMINAL PAIN UPPER [None]
  - ENZYME ABNORMALITY [None]
  - LIPASE INCREASED [None]
  - PANCREATITIS ACUTE [None]
